FAERS Safety Report 5336194-3 (Version None)
Quarter: 2007Q2

REPORT INFORMATION
  Report Type: 
  Country: None (occurrence: None)
  Receive Date: 20070315
  Receipt Date: 20070207
  Transmission Date: 20071010
  Serious: Yes (Death)
  Sender: FDA-Public Use
  Company Number: 07-000298

PATIENT

DRUGS (1)
  1. LOESTRIN 24 FE [Suspect]
     Dosage: 20/1000UG, QD, ORAL
     Route: 048

REACTIONS (1)
  - THROMBOSIS [None]
